FAERS Safety Report 17088946 (Version 1)
Quarter: 2019Q4

REPORT INFORMATION
  Report Type: Spontaneous
  Country: US (occurrence: US)
  Receive Date: 20191128
  Receipt Date: 20191128
  Transmission Date: 20200122
  Serious: Yes (Hospitalization, Other)
  Sender: FDA-Public Use
  Company Number: US-SHIRE-US201939838

PATIENT
  Age: 66 Year
  Sex: Female

DRUGS (1)
  1. GATTEX [Suspect]
     Active Substance: TEDUGLUTIDE\WATER
     Indication: PRODUCT USED FOR UNKNOWN INDICATION
     Dosage: 0.4950 UNIT UNKNOWN, UNKNOWN
     Route: 058
     Dates: start: 20171220, end: 20190901

REACTIONS (2)
  - Product administration interrupted [Recovered/Resolved]
  - Faecaloma [Recovering/Resolving]

NARRATIVE: CASE EVENT DATE: 20190901
